FAERS Safety Report 23251052 (Version 1)
Quarter: 2023Q4

REPORT INFORMATION
  Report Type: Spontaneous
  Country: US (occurrence: US)
  Receive Date: 20231201
  Receipt Date: 20231201
  Transmission Date: 20240110
  Serious: Yes (Other)
  Sender: FDA-Public Use
  Company Number: US-TORRENT-00013008

PATIENT
  Age: 75 Year
  Sex: Female

DRUGS (1)
  1. SIROLIMUS [Suspect]
     Active Substance: SIROLIMUS
     Indication: Skin cancer
     Dosage: UNKNOWN
     Route: 065

REACTIONS (2)
  - Fanconi syndrome [Recovered/Resolved]
  - Toxicity to various agents [Recovered/Resolved]
